FAERS Safety Report 4434836-8 (Version None)
Quarter: 2004Q3

REPORT INFORMATION
  Report Type: 
  Country: None (occurrence: None)
  Receive Date: 20040827
  Receipt Date: 20040224
  Transmission Date: 20050211
  Serious: Yes (Other)
  Sender: FDA-Public Use
  Company Number: PHNU2004DE00993

PATIENT
  Age: 6 Year
  Sex: Female
  Weight: 20 kg

DRUGS (4)
  1. SANDIMMUNE [Suspect]
     Indication: IMMUNODEFICIENCY COMMON VARIABLE
     Dosage: .8 ML, QD
     Route: 048
     Dates: start: 20031101, end: 20031123
  2. ZITHROMAX [Concomitant]
  3. IMMUNE GLOBULIN INTRAVENOUS (HUMAN) [Concomitant]
  4. METHYLPREDNISOLONE [Concomitant]
     Dosage: UNK, UNK
     Dates: start: 20031116

REACTIONS (4)
  - CD4 LYMPHOCYTES DECREASED [None]
  - CONDITION AGGRAVATED [None]
  - FOLLICULITIS [None]
  - SKIN ULCER [None]
